FAERS Safety Report 9384446 (Version 1)
Quarter: 2013Q2

REPORT INFORMATION
  Report Type: Spontaneous
  Country: GB (occurrence: None)
  Receive Date: 20130628
  Receipt Date: 20130628
  Transmission Date: 20140414
  Serious: Yes (Other)
  Sender: FDA-Public Use
  Company Number: AUR-APL-2013-05005

PATIENT
  Age: 59 Year
  Sex: Female

DRUGS (2)
  1. TERBINAFINE [Suspect]
     Indication: ONYCHOMYCOSIS
     Dosage: 1 DOSAGE FORMS (1 DOSAGE FORMS, 1 IN D)
     Dates: start: 201203, end: 201206
  2. BECLOMETHASONE (BECLOMETASONE DIPROPIONATE) [Concomitant]

REACTIONS (1)
  - Pain in extremity [None]
